FAERS Safety Report 11611782 (Version 1)
Quarter: 2015Q4

REPORT INFORMATION
  Report Type: Spontaneous
  Country: BE (occurrence: BE)
  Receive Date: 20151008
  Receipt Date: 20151008
  Transmission Date: 20160304
  Serious: Yes (Other)
  Sender: FDA-Public Use
  Company Number: BE-PFIZER INC-2015331816

PATIENT
  Age: 43 Year
  Sex: Female
  Weight: 65 kg

DRUGS (3)
  1. SOSTILAR [Suspect]
     Active Substance: CABERGOLINE
     Dosage: 0.25 MG, WEEKLY
     Route: 048
     Dates: start: 20130522, end: 20150917
  2. SOSTILAR [Suspect]
     Active Substance: CABERGOLINE
     Indication: PROLACTINOMA
     Dosage: 0.25 MG, 2X/WEEK
     Route: 048
     Dates: start: 20120823, end: 20130521
  3. SOSTILAR [Suspect]
     Active Substance: CABERGOLINE
     Dosage: UNK
     Route: 048
     Dates: start: 20150918

REACTIONS (2)
  - Mood swings [Not Recovered/Not Resolved]
  - Depression [Not Recovered/Not Resolved]

NARRATIVE: CASE EVENT DATE: 2013
